FAERS Safety Report 4323229-X (Version None)
Quarter: 2004Q1

REPORT INFORMATION
  Report Type: 
  Country: None (occurrence: None)
  Receive Date: 20040324
  Receipt Date: 20040324
  Transmission Date: 20041129
  Serious: No
  Sender: FDA-Public Use
  Company Number: None

PATIENT
  Age: 33 Year
  Sex: Female
  Weight: 52.1637 kg

DRUGS (2)
  1. XANAX [Suspect]
     Indication: ANXIETY
     Dosage: .5 MG 2X DAILY ORAL
     Route: 048
     Dates: start: 20040112, end: 20040115
  2. XANAX [Suspect]
     Indication: DEPRESSION
     Dosage: .5 MG 2X DAILY ORAL
     Route: 048
     Dates: start: 20040112, end: 20040115

REACTIONS (8)
  - AGITATION [None]
  - ANGER [None]
  - DISTURBANCE IN ATTENTION [None]
  - DRUG WITHDRAWAL SYNDROME [None]
  - DYSARTHRIA [None]
  - MOOD SWINGS [None]
  - PANIC ATTACK [None]
  - REBOUND EFFECT [None]
